FAERS Safety Report 4660221-X (Version None)
Quarter: 2005Q2

REPORT INFORMATION
  Report Type: 
  Country: None (occurrence: None)
  Receive Date: 20050502
  Receipt Date: 20050311
  Transmission Date: 20051028
  Serious: No
  Sender: FDA-Public Use
  Company Number: 200512111US

PATIENT

DRUGS (1)
  1. KETEK [Suspect]

REACTIONS (4)
  - BLISTER [None]
  - GLOSSODYNIA [None]
  - TONGUE DISCOLOURATION [None]
  - TONGUE ERUPTION [None]
